FAERS Safety Report 18205540 (Version 1)
Quarter: 2020Q3

REPORT INFORMATION
  Report Type: Spontaneous
  Country: FR (occurrence: FR)
  Receive Date: 20200827
  Receipt Date: 20200827
  Transmission Date: 20201103
  Serious: Yes (Hospitalization)
  Sender: FDA-Public Use
  Company Number: FR-BRISTOL-MYERS SQUIBB COMPANY-BMS-2020-066686

PATIENT
  Age: 72 Year
  Sex: Male
  Weight: 110 kg

DRUGS (3)
  1. OPDIVO [Suspect]
     Active Substance: NIVOLUMAB
     Indication: HEPATOCELLULAR CARCINOMA
     Dosage: 120 MILLIGRAM, 1 DAY
     Route: 041
     Dates: start: 20200402, end: 20200514
  2. YERVOY [Suspect]
     Active Substance: IPILIMUMAB
     Indication: HEPATOCELLULAR CARCINOMA
     Dosage: 365 MILLIGRAM, 1 DAY
     Route: 041
     Dates: start: 20200402, end: 20200514
  3. SELINCRO [Suspect]
     Active Substance: NALMEFENE HYDROCHLORIDE DIHYDRATE
     Indication: EX-ALCOHOL USER
     Dosage: 18 MILLIGRAM, DAILY
     Route: 048

REACTIONS (6)
  - Blood testosterone decreased [Not Recovered/Not Resolved]
  - Insulin-like growth factor abnormal [Not Recovered/Not Resolved]
  - Intentional product use issue [Unknown]
  - Hypophysitis [Not Recovered/Not Resolved]
  - Blood thyroid stimulating hormone decreased [Not Recovered/Not Resolved]
  - Tri-iodothyronine free decreased [Not Recovered/Not Resolved]

NARRATIVE: CASE EVENT DATE: 20200602
